FAERS Safety Report 7751958-4 (Version None)
Quarter: 2011Q3

REPORT INFORMATION
  Report Type: 
  Country: None (occurrence: None)
  Receive Date: 20110915
  Receipt Date: 20110906
  Transmission Date: 20111222
  Serious: Yes (Other)
  Sender: FDA-Public Use
  Company Number: US-JNJFOC-20110902805

PATIENT
  Age: 13 Year
  Sex: Female

DRUGS (1)
  1. REMICADE [Suspect]
     Indication: CROHN'S DISEASE
     Dosage: DOSE:200MG
     Route: 042
     Dates: start: 20110801

REACTIONS (3)
  - SERUM SICKNESS [None]
  - ALOPECIA [None]
  - JOINT SWELLING [None]
